FAERS Safety Report 20825296 (Version 4)
Quarter: 2022Q2

REPORT INFORMATION
  Report Type: Report from Study
  Country: CA (occurrence: CA)
  Receive Date: 20220513
  Receipt Date: 20220526
  Transmission Date: 20220720
  Serious: Yes (Hospitalization, Other)
  Sender: FDA-Public Use
  Company Number: CA-JNJFOC-20220422191

PATIENT
  Age: 30 Year
  Sex: Female
  Weight: 75.9 kg

DRUGS (2)
  1. REMICADE [Suspect]
     Active Substance: INFLIXIMAB
     Indication: Crohn^s disease
     Dosage: PATIENT RESCHEDULED THE APPOINTMENT OF 08-MAY-2022
     Route: 042
     Dates: start: 20200917
  2. ETHINYL ESTRADIOL\NORETHINDRONE ACETATE [Concomitant]
     Active Substance: ETHINYL ESTRADIOL\NORETHINDRONE ACETATE
     Indication: Product used for unknown indication
     Dosage: 10MCG + 1MG
     Route: 048

REACTIONS (8)
  - Haematochezia [Not Recovered/Not Resolved]
  - Pulmonary embolism [Unknown]
  - Influenza [Not Recovered/Not Resolved]
  - COVID-19 [Not Recovered/Not Resolved]
  - Vomiting [Unknown]
  - Diarrhoea [Not Recovered/Not Resolved]
  - Frequent bowel movements [Not Recovered/Not Resolved]
  - Abdominal pain [Not Recovered/Not Resolved]

NARRATIVE: CASE EVENT DATE: 20220409
